FAERS Safety Report 14754418 (Version 2)
Quarter: 2018Q2

REPORT INFORMATION
  Report Type: Report from Study
  Country: KR (occurrence: KR)
  Receive Date: 20180412
  Receipt Date: 20180426
  Transmission Date: 20180711
  Serious: Yes (Hospitalization, Other)
  Sender: FDA-Public Use
  Company Number: KR-BRISTOL-MYERS SQUIBB COMPANY-BMS-2018-033542

PATIENT
  Age: 64 Year
  Sex: Male
  Weight: 58.7 kg

DRUGS (11)
  1. TERACARE [Concomitant]
     Indication: BENIGN PROSTATIC HYPERPLASIA
     Dosage: UNK
     Route: 065
     Dates: start: 20180126
  2. TEGAFUR,GIMERACIL,OTERACIL POTASSIUM [Suspect]
     Active Substance: GIMERACIL\OTERACIL\TEGAFUR
     Indication: GASTRIC CANCER
     Dosage: 60 MG, BID
     Route: 048
     Dates: start: 20170725
  3. OXALIPLATIN. [Suspect]
     Active Substance: OXALIPLATIN
     Indication: GASTRIC CANCER
     Dosage: 130 MG/M2, Q3WK
     Route: 041
     Dates: start: 20170725, end: 20171109
  4. OXALIPLATIN. [Suspect]
     Active Substance: OXALIPLATIN
     Indication: PRODUCT USED FOR UNKNOWN INDICATION
     Dosage: 75 MG/M2, Q3WK
     Route: 041
     Dates: start: 20171221, end: 20171221
  5. BLINDED PLACEBO [Suspect]
     Active Substance: INVESTIGATIONAL PRODUCT
     Indication: GASTRIC CANCER
     Dosage: 360 MG, UNK
     Route: 065
     Dates: start: 20170725
  6. BESZYME [Concomitant]
     Indication: CHRONIC GASTRITIS
     Dosage: UNK
     Route: 065
     Dates: start: 20170306
  7. FINASTAR [Concomitant]
     Indication: BENIGN PROSTATIC HYPERPLASIA
     Dosage: UNK
     Route: 065
     Dates: start: 20180126
  8. UREMIN [Concomitant]
     Indication: BENIGN PROSTATIC HYPERPLASIA
     Dosage: UNK
     Route: 065
     Dates: start: 20180126
  9. OXALIPLATIN. [Suspect]
     Active Substance: OXALIPLATIN
     Indication: PRODUCT USED FOR UNKNOWN INDICATION
     Dosage: 100 MG/M2, Q3WK
     Route: 041
     Dates: start: 20171130, end: 20171130
  10. BLINDED NIVOLUMAB [Suspect]
     Active Substance: NIVOLUMAB
     Indication: GASTRIC CANCER
     Dosage: 360 MG, UNK
     Route: 065
     Dates: start: 20170725
  11. GASMOTIN [Concomitant]
     Active Substance: MOSAPRIDE CITRATE
     Indication: CHRONIC GASTRITIS
     Dosage: UNK
     Route: 065
     Dates: start: 20170703

REACTIONS (1)
  - Type 1 diabetes mellitus [Recovering/Resolving]

NARRATIVE: CASE EVENT DATE: 20180408
